FAERS Safety Report 7777570-9 (Version None)
Quarter: 2011Q3

REPORT INFORMATION
  Report Type: 
  Country: None (occurrence: None)
  Receive Date: 20110926
  Receipt Date: 20110919
  Transmission Date: 20111222
  Serious: Yes (Hospitalization)
  Sender: FDA-Public Use
  Company Number: NL-TEVA-302192ISR

PATIENT
  Age: 70 Year
  Sex: Female

DRUGS (2)
  1. AZAPROPAZONE [Concomitant]
  2. MORPHINE [Suspect]
     Indication: BACK PAIN

REACTIONS (2)
  - ACUTE GENERALISED EXANTHEMATOUS PUSTULOSIS [None]
  - PYREXIA [None]
